FAERS Safety Report 9528673 (Version 1)
Quarter: 2013Q2

REPORT INFORMATION
  Report Type: Spontaneous
  Country: US (occurrence: None)
  Receive Date: 20130402
  Receipt Date: 20130402
  Transmission Date: 20140414
  Serious: Yes (Death)
  Sender: FDA-Public Use
  Company Number: RB-47227-2012

PATIENT
  Sex: Female

DRUGS (3)
  1. SUBOXONE [Suspect]
     Indication: DRUG ABUSE
     Dosage: SUBOXONE FILM; DOSING SCHEDULE UNKNOWN UNKNOWN)
     Dates: end: 20120526
  2. KLONOPIN [Suspect]
     Indication: DRUG ABUSE
     Dates: end: 20120526
  3. ALCOHOL [Suspect]
     Indication: DRUG ABUSE
     Dates: end: 20120526

REACTIONS (3)
  - Substance abuse [None]
  - Toxicity to various agents [None]
  - Therapy naive [None]
